FAERS Safety Report 17359742 (Version 2)
Quarter: 2020Q1

REPORT INFORMATION
  Report Type: Spontaneous
  Country: FR (occurrence: FR)
  Receive Date: 20200203
  Receipt Date: 20200217
  Transmission Date: 20200409
  Serious: Yes (Hospitalization, Other)
  Sender: FDA-Public Use
  Company Number: FR-TAKEDA-2020TEU001082

PATIENT
  Age: 55 Year
  Sex: Male
  Weight: 89 kg

DRUGS (11)
  1. LANSOPRAZOLE. [Suspect]
     Active Substance: LANSOPRAZOLE
     Indication: PRODUCT USED FOR UNKNOWN INDICATION
     Dosage: 30 MILLIGRAM, QD
     Route: 048
     Dates: start: 201912, end: 20191225
  2. BISOPROLOL                         /00802602/ [Suspect]
     Active Substance: BISOPROLOL
     Indication: MYOCARDIAL INFARCTION
     Dosage: 5 MILLIGRAM, QD
     Route: 048
     Dates: start: 201912, end: 20191225
  3. NICOPATCH [Suspect]
     Active Substance: NICOTINE
     Indication: EX-TOBACCO USER
     Dosage: UNK
     Route: 062
     Dates: start: 201912, end: 20191225
  4. BRILIQUE [Suspect]
     Active Substance: TICAGRELOR
     Indication: MYOCARDIAL INFARCTION
     Dosage: 90 MILLIGRAM, QD
     Route: 048
     Dates: start: 201912, end: 20191225
  5. SERESTA [Suspect]
     Active Substance: OXAZEPAM
     Indication: PRODUCT USED FOR UNKNOWN INDICATION
     Dosage: 50 MILLIGRAM, QD
     Route: 048
     Dates: start: 201912, end: 20191225
  6. ATORVASTATINE                      /01326101/ [Suspect]
     Active Substance: ATORVASTATIN
     Indication: MYOCARDIAL INFARCTION
     Dosage: 80 MILLIGRAM, QD
     Route: 048
     Dates: start: 201912, end: 20191225
  7. NICOPAVERINA [Suspect]
     Active Substance: NIACIN\PAPAVERINE HYDROCHLORIDE
     Indication: EX-TOBACCO USER
     Dosage: UNK
     Route: 065
     Dates: start: 201912, end: 20191225
  8. FUROSEMIDE. [Suspect]
     Active Substance: FUROSEMIDE
     Indication: MYOCARDIAL INFARCTION
     Dosage: 40 MILLIGRAM, QD
     Route: 048
     Dates: start: 201912, end: 20191225
  9. NICOTINE. [Suspect]
     Active Substance: NICOTINE
     Indication: EX-TOBACCO USER
     Dosage: UNK
     Route: 062
     Dates: start: 201912, end: 20191225
  10. PRINCI B [CYANOCOBALAMIN/PYRIDOXINE HYDROCHLORIDE/THIAMINE MONONITRATE] [Suspect]
     Active Substance: CYANOCOBALAMIN\PYRIDOXINE HYDROCHLORIDE\THIAMINE
     Indication: PRODUCT USED FOR UNKNOWN INDICATION
     Dosage: UNK UNK, QD
     Route: 048
     Dates: start: 201912, end: 20191225
  11. RAMIPRIL. [Suspect]
     Active Substance: RAMIPRIL
     Indication: MYOCARDIAL INFARCTION
     Dosage: 2.5 MILLIGRAM, QD
     Route: 048
     Dates: start: 201912, end: 20191225

REACTIONS (2)
  - Hepatocellular injury [Recovered/Resolved]
  - Thrombotic microangiopathy [Recovering/Resolving]

NARRATIVE: CASE EVENT DATE: 20191222
